FAERS Safety Report 6053869-1 (Version None)
Quarter: 2009Q1

REPORT INFORMATION
  Report Type: 
  Country: None (occurrence: None)
  Receive Date: 20090122
  Receipt Date: 20090113
  Transmission Date: 20090719
  Serious: Yes (Hospitalization)
  Sender: FDA-Public Use
  Company Number: WAES 0812USA02711

PATIENT
  Age: 77 Year
  Sex: Male

DRUGS (15)
  1. CAP APREPITANT [Suspect]
     Indication: PROPHYLAXIS OF NAUSEA AND VOMITING
     Dosage: 125 MG/1X PO, 80 MG/1X PO
     Route: 048
     Dates: start: 20081208, end: 20081208
  2. CAP APREPITANT [Suspect]
     Indication: PROPHYLAXIS OF NAUSEA AND VOMITING
     Dosage: 125 MG/1X PO, 80 MG/1X PO
     Route: 048
     Dates: start: 20081209, end: 20081209
  3. INJ PLACEBO (UNSPECIFIED) [Suspect]
     Indication: PROPHYLAXIS OF NAUSEA AND VOMITING
     Dates: start: 20081208, end: 20081208
  4. ONDANSETRON [Suspect]
     Indication: PROPHYLAXIS OF NAUSEA AND VOMITING
     Dosage: 50 ML IV
     Route: 042
     Dates: start: 20081208, end: 20081208
  5. DEXAMETHASONE [Suspect]
     Indication: PROPHYLAXIS OF NAUSEA AND VOMITING
     Dosage: 12 MG/AM PO, 8 MG/AM PO
     Route: 048
     Dates: start: 20081208, end: 20081208
  6. DEXAMETHASONE [Suspect]
     Indication: PROPHYLAXIS OF NAUSEA AND VOMITING
     Dosage: 12 MG/AM PO, 8 MG/AM PO
     Route: 048
     Dates: start: 20081209, end: 20081209
  7. CISPLATIN [Suspect]
     Indication: LUNG NEOPLASM MALIGNANT
     Dosage: 150 MG IV
     Route: 042
     Dates: start: 20081208
  8. GEMCITABINE [Suspect]
     Indication: LUNG NEOPLASM MALIGNANT
     Dosage: 2300 MG
     Dates: start: 20081208
  9. ENOXAPARIN SODIUM [Concomitant]
  10. PANTOZOL [Concomitant]
  11. PLAVIX [Concomitant]
  12. ASPIRIN [Concomitant]
  13. BISOPROLOL [Concomitant]
  14. GEMCITABINE [Concomitant]
  15. SIMVASTATIN [Concomitant]

REACTIONS (2)
  - CHEST PAIN [None]
  - DYSPNOEA [None]
